FAERS Safety Report 20933992 (Version 1)
Quarter: 2022Q2

REPORT INFORMATION
  Report Type: Spontaneous
  Country: US (occurrence: US)
  Receive Date: 20220608
  Receipt Date: 20220608
  Transmission Date: 20220721
  Serious: Yes (Hospitalization, Other)
  Sender: FDA-Public Use
  Company Number: US-UNITED THERAPEUTICS-UNT-2022-011220

PATIENT
  Age: 62 Year
  Sex: Female
  Weight: 138 kg

DRUGS (2)
  1. REMODULIN [Suspect]
     Active Substance: TREPROSTINIL
     Indication: Pulmonary arterial hypertension
     Dosage: UNK, CONTINUING
     Route: 041
     Dates: start: 20190916
  2. REMODULIN [Suspect]
     Active Substance: TREPROSTINIL
     Dosage: 0.040 ?G/KG, CONTINUING (PUMP RATE OF 40 ML/24 HR)
     Route: 041

REACTIONS (2)
  - Pneumonia [Unknown]
  - Sepsis [Unknown]

NARRATIVE: CASE EVENT DATE: 20220520
